FAERS Safety Report 6518586-X (Version None)
Quarter: 2009Q4

REPORT INFORMATION
  Report Type: 
  Country: None (occurrence: None)
  Receive Date: 20091228
  Receipt Date: 20091221
  Transmission Date: 20100525
  Serious: Yes (Hospitalization, Other)
  Sender: FDA-Public Use
  Company Number: US-ASTRAZENECA-2009UW13617

PATIENT
  Age: 37 Year
  Sex: Male
  Weight: 88.5 kg

DRUGS (9)
  1. SEROQUEL [Suspect]
     Indication: BIPOLAR DISORDER
     Route: 048
     Dates: start: 19990101, end: 20080901
  2. SEROQUEL [Suspect]
     Indication: DEPRESSION
     Route: 048
     Dates: start: 19990101, end: 20080901
  3. SEROQUEL [Suspect]
     Route: 048
     Dates: start: 20080906
  4. SEROQUEL [Suspect]
     Route: 048
     Dates: start: 20080906
  5. ABILIFY [Concomitant]
  6. GEODON [Concomitant]
  7. HALDOL [Concomitant]
  8. RISPERDAL [Concomitant]
  9. ZYPREXA [Concomitant]

REACTIONS (7)
  - BLOOD CHOLESTEROL INCREASED [None]
  - DIABETES MELLITUS [None]
  - DIABETIC COMA [None]
  - DIABETIC KETOACIDOSIS [None]
  - DIABETIC NEUROPATHY [None]
  - PSYCHOTIC DISORDER [None]
  - RESTLESS LEGS SYNDROME [None]
